APPROVED DRUG PRODUCT: ROCURONIUM BROMIDE
Active Ingredient: ROCURONIUM BROMIDE
Strength: 50MG/5ML (10MG/ML)
Dosage Form/Route: INJECTABLE;INJECTION
Application: A204918 | Product #001
Applicant: RISING PHARMA HOLDINGS INC
Approved: Jul 12, 2024 | RLD: No | RS: No | Type: DISCN